FAERS Safety Report 15620869 (Version 2)
Quarter: 2018Q4

REPORT INFORMATION
  Report Type: Spontaneous
  Country: US (occurrence: US)
  Receive Date: 20181115
  Receipt Date: 20181116
  Transmission Date: 20190205
  Serious: No
  Sender: FDA-Public Use
  Company Number: US-SA-2018SA312611

PATIENT
  Age: 57 Year
  Sex: Female

DRUGS (1)
  1. PRALUENT [Suspect]
     Active Substance: ALIROCUMAB
     Indication: BLOOD CHOLESTEROL INCREASED
     Dosage: 150 MG, QOW
     Route: 058
     Dates: start: 20181025

REACTIONS (5)
  - Condition aggravated [Unknown]
  - Gastrointestinal disorder [Unknown]
  - Back pain [Unknown]
  - Abdominal distension [Not Recovered/Not Resolved]
  - Constipation [Unknown]

NARRATIVE: CASE EVENT DATE: 20181108
